FAERS Safety Report 4742406-7 (Version None)
Quarter: 2005Q3

REPORT INFORMATION
  Report Type: 
  Country: None (occurrence: None)
  Receive Date: 20050808
  Receipt Date: 20050802
  Transmission Date: 20060218
  Serious: Yes (Other)
  Sender: FDA-Public Use
  Company Number: HQWYE333208JUN05

PATIENT
  Age: 32 Year
  Sex: Female

DRUGS (2)
  1. ENBREL [Suspect]
     Indication: PSORIASIS
     Dosage: 50 MG 2X PER 1 WK
     Dates: start: 20050310, end: 20050516
  2. INDERAL [Suspect]

REACTIONS (1)
  - HODGKIN'S DISEASE [None]
